FAERS Safety Report 12099999 (Version 1)
Quarter: 2016Q1

REPORT INFORMATION
  Report Type: Spontaneous
  Country: US (occurrence: None)
  Receive Date: 20160219
  Receipt Date: 20160219
  Transmission Date: 20160526
  Serious: No
  Sender: FDA-Public Use
  Company Number: None

PATIENT
  Age: 46 Year
  Sex: Male
  Weight: 72.58 kg

DRUGS (1)
  1. VALSARTAN 40MG FROM KAISER [Suspect]
     Active Substance: VALSARTAN
     Route: 048

REACTIONS (1)
  - Cardiac flutter [None]

NARRATIVE: CASE EVENT DATE: 20160118
